FAERS Safety Report 8054406-2 (Version None)
Quarter: 2012Q1

REPORT INFORMATION
  Report Type: 
  Country: None (occurrence: None)
  Receive Date: 20120118
  Receipt Date: 20120109
  Transmission Date: 20120608
  Serious: Yes (Other)
  Sender: FDA-Public Use
  Company Number: ES-ASTRAZENECA-2012SE01705

PATIENT
  Sex: Female

DRUGS (1)
  1. ANASTROZOLE [Suspect]
     Indication: BREAST CANCER METASTATIC
     Route: 048

REACTIONS (6)
  - ASTHENIA [None]
  - BONE PAIN [None]
  - NERVOUS SYSTEM DISORDER [None]
  - INFECTION [None]
  - DYSPNOEA [None]
  - CONSTIPATION [None]
